FAERS Safety Report 14979154 (Version 1)
Quarter: 2018Q2

REPORT INFORMATION
  Report Type: Spontaneous
  Country: US (occurrence: US)
  Receive Date: 20180606
  Receipt Date: 20180606
  Transmission Date: 20180711
  Serious: No
  Sender: FDA-Public Use
  Company Number: US-ENDO PHARMACEUTICALS INC-2017-003861

PATIENT
  Sex: Male

DRUGS (1)
  1. PROMETHAZINE HCL SYRUP [Suspect]
     Active Substance: PROMETHAZINE HYDROCHLORIDE
     Indication: NAUSEA
     Dosage: UNK UNK, UNKNOWN
     Route: 048
     Dates: start: 20170620

REACTIONS (4)
  - Product taste abnormal [Unknown]
  - Diarrhoea [Unknown]
  - Product physical consistency issue [Unknown]
  - Product colour issue [Unknown]
